FAERS Safety Report 20655693 (Version 1)
Quarter: 2022Q1

REPORT INFORMATION
  Report Type: Spontaneous
  Country: US (occurrence: US)
  Receive Date: 20220330
  Receipt Date: 20220330
  Transmission Date: 20220423
  Serious: No
  Sender: FDA-Public Use
  Company Number: US-JUBILANT CADISTA PHARMACEUTICALS-2021JUB00350

PATIENT
  Sex: Male

DRUGS (1)
  1. PROCHLORPERAZINE MALEATE [Suspect]
     Active Substance: PROCHLORPERAZINE MALEATE
     Route: 060

REACTIONS (3)
  - Stomatitis [Unknown]
  - Chemical burn of oral cavity [Unknown]
  - Incorrect route of product administration [Unknown]
